FAERS Safety Report 23454227 (Version 1)
Quarter: 2024Q1

REPORT INFORMATION
  Report Type: Spontaneous
  Country: US (occurrence: US)
  Receive Date: 20240130
  Receipt Date: 20240130
  Transmission Date: 20240410
  Serious: No
  Sender: FDA-Public Use
  Company Number: US-TEVA-VS-3141820

PATIENT

DRUGS (1)
  1. UZEDY [Suspect]
     Active Substance: RISPERIDONE
     Dosage: DOSAGE: 50 MG/ML 50/0.14 MG/ML
     Route: 065

REACTIONS (1)
  - Drug screen positive [Unknown]
